FAERS Safety Report 19275845 (Version 1)
Quarter: 2021Q2

REPORT INFORMATION
  Report Type: Spontaneous
  Country: JP (occurrence: JP)
  Receive Date: 20210519
  Receipt Date: 20210519
  Transmission Date: 20210717
  Serious: Yes (Hospitalization)
  Sender: FDA-Public Use
  Company Number: JP-PFIZER INC-2021504769

PATIENT
  Age: 29 Year
  Sex: Female

DRUGS (1)
  1. PREMARIN [Suspect]
     Active Substance: ESTROGENS, CONJUGATED
     Indication: ENDOMETRIAL DISORDER
     Dosage: 2.5 MG, DAILY (4 TABLETS DIVIDING IN TWICE)
     Route: 048
     Dates: start: 20210426, end: 20210428

REACTIONS (3)
  - Subclavian artery thrombosis [Unknown]
  - Off label use [Unknown]
  - Subclavian vein thrombosis [Unknown]

NARRATIVE: CASE EVENT DATE: 20210426
